FAERS Safety Report 5302604-0 (Version None)
Quarter: 2007Q2

REPORT INFORMATION
  Report Type: 
  Country: None (occurrence: None)
  Receive Date: 20070419
  Receipt Date: 20070407
  Transmission Date: 20071010
  Serious: Yes (Life-Threatening)
  Sender: FDA-Public Use
  Company Number: GB-BOEHRINGER INGELHEIM PHARMACEUTICALS, INC.-2007-BP-05302YA

PATIENT
  Age: 81 Year
  Sex: Male
  Weight: 60 kg

DRUGS (6)
  1. TAMSULOSIN HCL [Suspect]
     Indication: PROSTATIC DISORDER
     Route: 048
     Dates: start: 20070302, end: 20070307
  2. ASPIRIN [Concomitant]
  3. DILTIAZEM [Concomitant]
  4. LANSOPRAZOLE [Concomitant]
  5. LISINOPRIL [Concomitant]
  6. PRAVASTATIN [Concomitant]

REACTIONS (2)
  - CEREBRAL INFARCTION [None]
  - MALAISE [None]
